FAERS Safety Report 9270229 (Version 1)
Quarter: 2013Q2

REPORT INFORMATION
  Report Type: Spontaneous
  Country: HR (occurrence: HR)
  Receive Date: 20130503
  Receipt Date: 20130503
  Transmission Date: 20140414
  Serious: Yes (Hospitalization)
  Sender: FDA-Public Use
  Company Number: HR-GLAXOSMITHKLINE-B0888917A

PATIENT
  Age: 84 Year
  Sex: Male

DRUGS (3)
  1. REVOLADE [Suspect]
     Dosage: 50MG PER DAY
     Route: 048
     Dates: start: 20130219, end: 20130304
  2. WARFARIN SODIUM [Concomitant]
     Route: 065
  3. MEDROL [Concomitant]
     Dosage: 4MG TWICE PER DAY
     Route: 065
     Dates: end: 20130304

REACTIONS (1)
  - Peripheral ischaemia [Not Recovered/Not Resolved]
